FAERS Safety Report 19021796 (Version 3)
Quarter: 2021Q2

REPORT INFORMATION
  Report Type: Spontaneous
  Country: US (occurrence: US)
  Receive Date: 20210318
  Receipt Date: 20210614
  Transmission Date: 20210717
  Serious: No
  Sender: FDA-Public Use
  Company Number: US-BIOGEN-2021BI00990739

PATIENT
  Age: 14 Year
  Sex: Male

DRUGS (1)
  1. TYSABRI [Suspect]
     Active Substance: NATALIZUMAB
     Indication: MULTIPLE SCLEROSIS
     Route: 042
     Dates: start: 20210311

REACTIONS (4)
  - Off label use [Not Recovered/Not Resolved]
  - Optic neuritis [Not Recovered/Not Resolved]
  - Headache [Recovered/Resolved with Sequelae]
  - Lethargy [Unknown]

NARRATIVE: CASE EVENT DATE: 20210311
